FAERS Safety Report 9697811 (Version 1)
Quarter: 2013Q4

REPORT INFORMATION
  Report Type: Spontaneous
  Country: US (occurrence: US)
  Receive Date: 20131120
  Receipt Date: 20131120
  Transmission Date: 20140711
  Serious: No
  Sender: FDA-Public Use
  Company Number: US-PFIZER INC-2013330859

PATIENT
  Age: 54 Year
  Sex: Female
  Weight: 68.03 kg

DRUGS (2)
  1. CHANTIX [Suspect]
     Indication: SMOKING CESSATION THERAPY
     Dosage: 0.5 MG, 1X/DAY
     Route: 048
     Dates: start: 201311, end: 201311
  2. CHANTIX [Suspect]
     Dosage: UNK
     Route: 048
     Dates: start: 201311, end: 201311

REACTIONS (3)
  - Nausea [Unknown]
  - Fear [Unknown]
  - Drug ineffective [Unknown]
